FAERS Safety Report 14669342 (Version 1)
Quarter: 2018Q1

REPORT INFORMATION
  Report Type: Spontaneous
  Country: US (occurrence: US)
  Receive Date: 20180321
  Receipt Date: 20180321
  Transmission Date: 20180509
  Serious: Yes (Disabling)
  Sender: FDA-Public Use
  Company Number: None

PATIENT
  Age: 53 Year
  Sex: Female
  Weight: 130.5 kg

DRUGS (21)
  1. FUROSEMIDE. [Concomitant]
     Active Substance: FUROSEMIDE
  2. METHYLPREDNISOLONE. [Concomitant]
     Active Substance: METHYLPREDNISOLONE
  3. KLOR-CON [Concomitant]
     Active Substance: POTASSIUM CHLORIDE
  4. VOLTAREN [Concomitant]
     Active Substance: DICLOFENAC SODIUM
  5. DULCOLAX NOS [Concomitant]
     Active Substance: BISACODYL OR DOCUSATE SODIUM
  6. ACTEMRA [Concomitant]
     Active Substance: TOCILIZUMAB
  7. TARO BRAND NYSTATIN CREAM USP 100,000 UNITS PER GRAM LOT 317022 EXP 08 [Suspect]
     Active Substance: NYSTATIN
     Indication: FUNGAL INFECTION
     Route: 061
     Dates: start: 20180314, end: 20180315
  8. SINGULAIR [Concomitant]
     Active Substance: MONTELUKAST SODIUM
  9. ALBUTEROL SULFATE. [Concomitant]
     Active Substance: ALBUTEROL SULFATE
  10. LISININOPRIL-HYDROCHLOROTHALIZIDE [Concomitant]
  11. VITAMIN D [Concomitant]
     Active Substance: CHOLECALCIFEROL
  12. FIBER [Concomitant]
     Active Substance: PSYLLIUM HUSK
  13. NYSTATIN ORAL SUSPENSION [Concomitant]
     Active Substance: NYSTATIN
  14. AMITRIPTYLINE HCL [Concomitant]
     Active Substance: AMITRIPTYLINE
  15. DULCOLAX NOS [Concomitant]
     Active Substance: BISACODYL OR DOCUSATE SODIUM
  16. BASAGLAR INSULIN PEN [Concomitant]
  17. SALGO [Concomitant]
  18. CLIENT HFA [Concomitant]
  19. GABAPENTIN. [Concomitant]
     Active Substance: GABAPENTIN
  20. NYSTATIN CREAM [Concomitant]
     Active Substance: NYSTATIN
  21. OXYCODONE HYDROCHLORIDE. [Concomitant]
     Active Substance: OXYCODONE HYDROCHLORIDE

REACTIONS (4)
  - Asthma [None]
  - Product substitution issue [None]
  - Product label issue [None]
  - Product odour abnormal [None]

NARRATIVE: CASE EVENT DATE: 20180314
